FAERS Safety Report 23068888 (Version 2)
Quarter: 2023Q4

REPORT INFORMATION
  Report Type: Report from Study
  Country: EG (occurrence: EG)
  Receive Date: 20231016
  Receipt Date: 20231028
  Transmission Date: 20240109
  Serious: Yes (Other)
  Sender: FDA-Public Use
  Company Number: EG-002147023-NVSC2023EG220128

PATIENT
  Age: 44 Year
  Sex: Female

DRUGS (10)
  1. GILENYA [Suspect]
     Active Substance: FINGOLIMOD HYDROCHLORIDE
     Indication: Multiple sclerosis
     Dosage: UNK
     Route: 048
  2. GILENYA [Suspect]
     Active Substance: FINGOLIMOD HYDROCHLORIDE
     Dosage: 1 DOSAGE FORM, QD
     Route: 048
     Dates: start: 20230729
  3. .ALPHA.-LIPOIC ACID [Concomitant]
     Active Substance: .ALPHA.-LIPOIC ACID
     Indication: Medical diet
     Dosage: 1 DOSAGE FORM, QD
     Route: 065
     Dates: start: 202306
  4. .ALPHA.-LIPOIC ACID [Concomitant]
     Active Substance: .ALPHA.-LIPOIC ACID
     Indication: Vitamin supplementation
  5. OSTEOCARE [Concomitant]
     Active Substance: CALCIUM\CHOLECALCIFEROL\MAGNESIUM\ZINC
     Indication: Medical diet
     Dosage: 1 DOSAGE FORM, QD
     Route: 065
     Dates: start: 202306
  6. OSTEOCARE [Concomitant]
     Active Substance: CALCIUM\CHOLECALCIFEROL\MAGNESIUM\ZINC
     Indication: Vitamin supplementation
  7. FOLIC ACID [Concomitant]
     Active Substance: FOLIC ACID
     Indication: Medical diet
     Dosage: 1 DOSAGE FORM, QD
     Route: 065
     Dates: start: 202306
  8. FOLIC ACID [Concomitant]
     Active Substance: FOLIC ACID
     Indication: Vitamin supplementation
  9. DELTAVIT B12 [Concomitant]
     Indication: Medical diet
     Dosage: 1 DOSAGE FORM, QD
     Route: 065
     Dates: start: 202306
  10. DELTAVIT B12 [Concomitant]
     Indication: Vitamin supplementation

REACTIONS (4)
  - Angina pectoris [Recovered/Resolved]
  - Pneumonitis [Recovered/Resolved]
  - Alopecia [Recovering/Resolving]
  - Hepatic enzyme increased [Unknown]

NARRATIVE: CASE EVENT DATE: 20230901
